FAERS Safety Report 9675468 (Version 1)
Quarter: 2013Q4

REPORT INFORMATION
  Report Type: Spontaneous
  Country: BG (occurrence: BG)
  Receive Date: 20131107
  Receipt Date: 20131107
  Transmission Date: 20140711
  Serious: Yes (Hospitalization, Disabling)
  Sender: FDA-Public Use
  Company Number: BG-JNJFOC-20131100929

PATIENT
  Age: 46 Year
  Sex: Female

DRUGS (1)
  1. SIMPONI [Suspect]
     Indication: RHEUMATOID ARTHRITIS
     Route: 058
     Dates: start: 201306

REACTIONS (4)
  - Vertigo CNS origin [Recovering/Resolving]
  - Cerebral hygroma [Unknown]
  - Cerebellar atrophy [Unknown]
  - Traumatic haemorrhage [Unknown]
